FAERS Safety Report 7506572-2 (Version None)
Quarter: 2011Q2

REPORT INFORMATION
  Report Type: 
  Country: None (occurrence: None)
  Receive Date: 20110526
  Receipt Date: 20110519
  Transmission Date: 20111010
  Serious: Yes (Hospitalization)
  Sender: FDA-Public Use
  Company Number: FR-BRISTOL-MYERS SQUIBB COMPANY-15768658

PATIENT
  Age: 84 Year
  Sex: Female

DRUGS (6)
  1. COUMADIN [Suspect]
     Indication: ATRIAL FIBRILLATION
     Route: 048
     Dates: start: 20110401, end: 20110505
  2. ALDACTONE [Concomitant]
  3. LASIX [Concomitant]
  4. PREVISCAN [Concomitant]
     Indication: ATRIAL FIBRILLATION
     Dates: start: 20110324, end: 20110331
  5. CORDARONE [Suspect]
     Indication: ATRIAL FIBRILLATION
     Route: 048
     Dates: start: 20110401, end: 20110505
  6. BISOPROLOL FUMARATE [Concomitant]
     Indication: ATRIAL FIBRILLATION
     Dates: start: 20110324, end: 20110331

REACTIONS (3)
  - CYTOLYTIC HEPATITIS [None]
  - INTERNATIONAL NORMALISED RATIO INCREASED [None]
  - HYPONATRAEMIA [None]
